FAERS Safety Report 5273655-X (Version None)
Quarter: 2007Q1

REPORT INFORMATION
  Report Type: 
  Country: None (occurrence: None)
  Receive Date: 20070321
  Receipt Date: 20070321
  Transmission Date: 20070707
  Serious: Yes (Life-Threatening)
  Sender: FDA-Public Use
  Company Number: None

PATIENT
  Age: 44 Year
  Sex: Female
  Weight: 38 kg

DRUGS (1)
  1. DAPSONE [Suspect]
     Indication: PNEUMOCYSTIS JIROVECI PNEUMONIA
     Dosage: 100MG DAILY PO
     Route: 048
     Dates: start: 20060901, end: 20070207

REACTIONS (3)
  - BLOOD METHAEMOGLOBIN PRESENT [None]
  - DYSPNOEA [None]
  - OXYGEN SATURATION DECREASED [None]
